FAERS Safety Report 11872345 (Version 1)
Quarter: 2015Q4

REPORT INFORMATION
  Report Type: Report from Study
  Country: None (occurrence: DE)
  Receive Date: 20151228
  Receipt Date: 20151228
  Transmission Date: 20160305
  Serious: Yes (Other)
  Sender: FDA-Public Use
  Company Number: DE-TEVA-619654GER

PATIENT
  Age: 68 Year
  Sex: Male
  Weight: 84 kg

DRUGS (17)
  1. RAMIPRIL. [Concomitant]
     Active Substance: RAMIPRIL
     Dosage: 4 DOSAGE FORMS DAILY; 1-0-1-0
     Dates: start: 20151112
  2. TARGIN 5 MG/2,5 MG [Concomitant]
     Dosage: 1-0-0-1
     Dates: start: 20151110, end: 20151111
  3. NOVALGIN [Concomitant]
     Active Substance: METAMIZOLE SODIUM
     Dates: start: 20151104
  4. KYTTA-SEDATIVUM [Concomitant]
     Dosage: 0-0-0-1
     Dates: start: 20151102, end: 20151111
  5. TAVOR [Concomitant]
     Active Substance: LORAZEPAM
     Dosage: 1-0-1-0
     Dates: start: 20151102
  6. TAVOR [Concomitant]
     Active Substance: LORAZEPAM
     Dosage: 1-1-0
     Dates: start: 20151103
  7. TARGIN 10 MG/5 MG [Concomitant]
     Dosage: 0-0-0-1
     Dates: start: 20151103
  8. RAMIPRIL. [Concomitant]
     Active Substance: RAMIPRIL
     Dosage: 02-NOV-2015 TO 12-NOV-2015 EXCEPT 03-NOV-2015
  9. TOREM 10 [Concomitant]
     Active Substance: TORSEMIDE
     Dosage: 0-1-0
     Dates: start: 20151109, end: 20151111
  10. REMESTAN [Concomitant]
     Dates: start: 20151110
  11. INDOMETACIN [Suspect]
     Active Substance: INDOMETHACIN
     Dosage: 100 MILLIGRAM DAILY;
     Route: 048
     Dates: start: 20151104, end: 20151112
  12. TAVOR [Concomitant]
     Active Substance: LORAZEPAM
     Dosage: 0-0-1
     Dates: start: 20151108
  13. PANTOZOL 20 MG [Concomitant]
     Dosage: 0-0-1
     Dates: start: 20151103, end: 20151112
  14. XARELTO [Interacting]
     Active Substance: RIVAROXABAN
     Indication: THROMBOSIS PROPHYLAXIS
     Route: 048
     Dates: start: 20151104, end: 20151112
  15. DREISAFER [Concomitant]
     Dosage: 0-1-0-0
     Dates: start: 20151112
  16. TARGIN 10 MG/5 MG [Concomitant]
     Dosage: 1-0-0-1
     Dates: start: 20151104, end: 20151109
  17. PARACETAMOL [Concomitant]
     Active Substance: ACETAMINOPHEN
     Dates: start: 20151104

REACTIONS (3)
  - Intra-abdominal haematoma [Recovered/Resolved]
  - Drug interaction [Unknown]
  - Post procedural haematoma [Recovered/Resolved]

NARRATIVE: CASE EVENT DATE: 201511
